FAERS Safety Report 21293443 (Version 1)
Quarter: 2022Q3

REPORT INFORMATION
  Report Type: Spontaneous
  Country: US (occurrence: US)
  Receive Date: 20220905
  Receipt Date: 20220905
  Transmission Date: 20221027
  Serious: No
  Sender: FDA-Public Use
  Company Number: US-ALKEM LABORATORIES LIMITED-US-ALKEM-2022-06451

PATIENT
  Age: 56 Year
  Sex: Female

DRUGS (1)
  1. TACROLIMUS [Suspect]
     Active Substance: TACROLIMUS
     Indication: Lichen planopilaris
     Dosage: 5-10 MG/CC
     Route: 065

REACTIONS (1)
  - Treatment failure [Unknown]
